FAERS Safety Report 23406972 (Version 4)
Quarter: 2025Q3

REPORT INFORMATION
  Report Type: Report from Study
  Country: US (occurrence: US)
  Receive Date: 20240116
  Receipt Date: 20250910
  Transmission Date: 20251020
  Serious: Yes (Death, Other)
  Sender: GILEAD
  Company Number: US-GILEAD-2023-0622420

PATIENT
  Age: 73 Year
  Sex: Female

DRUGS (3)
  1. BREXUCABTAGENE AUTOLEUCEL [Suspect]
     Active Substance: BREXUCABTAGENE AUTOLEUCEL
     Indication: Acute lymphocytic leukaemia
     Route: 065
  2. CYCLOPHOSPHAMIDE [Concomitant]
     Active Substance: CYCLOPHOSPHAMIDE
     Indication: Lymphodepletion
  3. FLUDARABINE [Concomitant]
     Active Substance: FLUDARABINE PHOSPHATE
     Indication: Lymphodepletion

REACTIONS (2)
  - Infection [Fatal]
  - Myelodysplastic syndrome [Not Recovered/Not Resolved]
